FAERS Safety Report 15492517 (Version 1)
Quarter: 2018Q4

REPORT INFORMATION
  Report Type: Spontaneous
  Country: US (occurrence: US)
  Receive Date: 20181004
  Receipt Date: 20181004
  Transmission Date: 20190205
  Serious: No
  Sender: FDA-Public Use
  Company Number: None

PATIENT
  Age: 71 Year
  Sex: Male

DRUGS (1)
  1. INLYTA [Suspect]
     Active Substance: AXITINIB
     Indication: LUNG NEOPLASM MALIGNANT
     Route: 048
     Dates: start: 20180809, end: 20180928

REACTIONS (5)
  - Pharyngeal oedema [None]
  - Therapy cessation [None]
  - Mouth swelling [None]
  - Swollen tongue [None]
  - Feeding disorder [None]

NARRATIVE: CASE EVENT DATE: 20180928
